FAERS Safety Report 7711532-2 (Version None)
Quarter: 2011Q3

REPORT INFORMATION
  Report Type: 
  Country: None (occurrence: None)
  Receive Date: 20110826
  Receipt Date: 20110817
  Transmission Date: 20111222
  Serious: Yes (Hospitalization, Other)
  Sender: FDA-Public Use
  Company Number: GB-JNJFOC-20110809023

PATIENT
  Age: 75 Year
  Sex: Female

DRUGS (2)
  1. DURAGESIC-100 [Suspect]
     Route: 062
     Dates: end: 20110803
  2. DURAGESIC-100 [Suspect]
     Indication: PRODUCT USED FOR UNKNOWN INDICATION
     Route: 062
     Dates: start: 20110816

REACTIONS (5)
  - HOSPITALISATION [None]
  - ACTIVITIES OF DAILY LIVING IMPAIRED [None]
  - SPEECH DISORDER [None]
  - SOMNOLENCE [None]
  - TOXICITY TO VARIOUS AGENTS [None]
